FAERS Safety Report 15857537 (Version 1)
Quarter: 2019Q1

REPORT INFORMATION
  Report Type: Spontaneous
  Country: US (occurrence: US)
  Receive Date: 20190122
  Receipt Date: 20190122
  Transmission Date: 20190417
  Serious: Yes (Other)
  Sender: FDA-Public Use
  Company Number: None

PATIENT
  Age: 60 Year
  Sex: Female
  Weight: 81 kg

DRUGS (1)
  1. TRULICITY [Suspect]
     Active Substance: DULAGLUTIDE
     Indication: DIABETES MELLITUS
     Dates: start: 20180918, end: 20190122

REACTIONS (12)
  - Pain in extremity [None]
  - Arthralgia [None]
  - Headache [None]
  - Visual impairment [None]
  - Diarrhoea [None]
  - Gastrointestinal pain [None]
  - Nausea [None]
  - Pain [None]
  - Eye pruritus [None]
  - Back pain [None]
  - Abdominal pain upper [None]
  - Pruritus [None]

NARRATIVE: CASE EVENT DATE: 20190121
